FAERS Safety Report 12287692 (Version 2)
Quarter: 2016Q2

REPORT INFORMATION
  Report Type: Spontaneous
  Country: JP (occurrence: JP)
  Receive Date: 20160420
  Receipt Date: 20160526
  Transmission Date: 20160815
  Serious: Yes (Death, Other)
  Sender: FDA-Public Use
  Company Number: JP-GILEAD-2016-0208805

PATIENT
  Sex: Male

DRUGS (3)
  1. NEXAVAR [Concomitant]
     Active Substance: SORAFENIB
     Dosage: UNK
  2. BARACLUDE [Concomitant]
     Active Substance: ENTECAVIR
     Dosage: UNK
  3. TENOFOVIR DISOPROXIL FUMARATE. [Suspect]
     Active Substance: TENOFOVIR DISOPROXIL FUMARATE
     Indication: HEPATITIS B
     Dosage: 300 MG, QD
     Route: 048

REACTIONS (2)
  - Hepatitis B DNA increased [Unknown]
  - Hepatic failure [Fatal]
